FAERS Safety Report 9660507 (Version 1)
Quarter: 2013Q4

REPORT INFORMATION
  Report Type: Spontaneous
  Country: GB (occurrence: GB)
  Receive Date: 20131031
  Receipt Date: 20131031
  Transmission Date: 20140711
  Serious: Yes (Hospitalization)
  Sender: FDA-Public Use
  Company Number: PHHY2013GB119372

PATIENT
  Sex: Male
  Weight: 71.6 kg

DRUGS (4)
  1. DONEPEZIL [Suspect]
     Indication: DEMENTIA ALZHEIMER^S TYPE
     Dosage: 5 MG, QD (1 OM)
     Route: 048
     Dates: start: 20130308, end: 20130310
  2. ASPIRIN [Concomitant]
     Indication: PROPHYLAXIS
     Dosage: 75 MG, QD (1 OM)
     Route: 048
  3. AMLODIPINE [Concomitant]
     Indication: HYPERTENSION
     Dosage: 10 MG, QD (1 OM)
     Route: 048
  4. SERTRALINE [Concomitant]
     Indication: DEPRESSION
     Dosage: 100 MG, QD (1 OM)
     Route: 048

REACTIONS (9)
  - Atrial fibrillation [Unknown]
  - Pallor [Unknown]
  - Cold sweat [Unknown]
  - Eye movement disorder [Unknown]
  - Tremor [Unknown]
  - Unresponsive to stimuli [Unknown]
  - Bradycardia [Unknown]
  - Syncope [Recovered/Resolved]
  - Vomiting [Unknown]
